FAERS Safety Report 4453337-4 (Version None)
Quarter: 2004Q3

REPORT INFORMATION
  Report Type: 
  Country: None (occurrence: None)
  Receive Date: 20040920
  Receipt Date: 20040908
  Transmission Date: 20050211
  Serious: Yes (Life-Threatening)
  Sender: FDA-Public Use
  Company Number: PHNR2004AU01411

PATIENT
  Age: 44 Year
  Sex: Female

DRUGS (1)
  1. CLOZARIL [Suspect]
     Dosage: 25 - 400 MG/DAY
     Route: 048
     Dates: start: 20040211, end: 20040906

REACTIONS (1)
  - EXTRASYSTOLES [None]
